FAERS Safety Report 9991273 (Version 1)
Quarter: 2014Q1

REPORT INFORMATION
  Report Type: Spontaneous
  Country: US (occurrence: US)
  Receive Date: 20140310
  Receipt Date: 20140310
  Transmission Date: 20141002
  Serious: No
  Sender: FDA-Public Use
  Company Number: US-PFIZER INC-2014067022

PATIENT
  Age: 64 Year
  Sex: Female
  Weight: 56.69 kg

DRUGS (5)
  1. CELEBREX [Suspect]
     Indication: OSTEOARTHRITIS
     Dosage: 200 MG, 1X/DAY
     Dates: end: 2014
  2. HYDROCHLOROTHIAZIDE/LOSARTAN [Concomitant]
     Indication: HYPERTENSION
     Dosage: 25/600MG ONCE DAILY
  3. SINGULAIR [Concomitant]
     Indication: ASTHMA
     Dosage: 10 MG, 1X/DAY
  4. ALENDRONATE SODIUM [Concomitant]
     Indication: OSTEOPOROSIS
     Dosage: 91.37 MG, WEEKLY
  5. VERAPAMIL [Concomitant]
     Indication: SINUS TACHYCARDIA
     Dosage: 120 MG, 2X/DAY

REACTIONS (1)
  - Pain [Unknown]
